FAERS Safety Report 5624164-7 (Version None)
Quarter: 2008Q1

REPORT INFORMATION
  Report Type: 
  Country: None (occurrence: None)
  Receive Date: 20080213
  Receipt Date: 20080204
  Transmission Date: 20080703
  Serious: Yes (Hospitalization)
  Sender: FDA-Public Use
  Company Number: PHBS2008CH01804

PATIENT
  Age: 75 Year
  Sex: Male

DRUGS (5)
  1. HYDROCHLOROTHIAZIDE [Suspect]
     Indication: HYPERTENSION
     Dosage: 12.5 MG/DAY
  2. PARACETAMOL [Suspect]
     Dosage: 4 G/DAY
     Route: 042
  3. PARACETAMOL [Suspect]
     Dosage: 4 G/DAY
     Route: 048
  4. RAMIPRIL [Concomitant]
     Dosage: 10 MG/DAY
  5. ANESTHETICS NOS [Concomitant]

REACTIONS (16)
  - ABDOMINAL PAIN [None]
  - ACUTE HEPATIC FAILURE [None]
  - AGITATION [None]
  - ALANINE AMINOTRANSFERASE INCREASED [None]
  - ANOREXIA [None]
  - ASPARTATE AMINOTRANSFERASE INCREASED [None]
  - BLOOD BILIRUBIN INCREASED [None]
  - BLOOD LACTIC ACID DECREASED [None]
  - FACTOR V DEFICIENCY [None]
  - FALL [None]
  - FRACTURE [None]
  - HEPATIC ENCEPHALOPATHY [None]
  - INTERNATIONAL NORMALISED RATIO INCREASED [None]
  - JOINT SPRAIN [None]
  - NAUSEA [None]
  - SURGERY [None]
